FAERS Safety Report 16324818 (Version 16)
Quarter: 2024Q2

REPORT INFORMATION
  Report Type: Spontaneous
  Country: FR (occurrence: FR)
  Receive Date: 20190517
  Receipt Date: 20240523
  Transmission Date: 20240716
  Serious: Yes (Other)
  Sender: FDA-Public Use
  Company Number: PHHY2019FR107992

PATIENT
  Age: 78 Year
  Sex: Female

DRUGS (20)
  1. TOBRADEX [Suspect]
     Active Substance: DEXAMETHASONE\TOBRAMYCIN
     Indication: Postoperative care
     Dosage: 1 DRP, QD (STOPPED ON 13/APR/2019 ONLY FOR THE RIGHT EYE)
     Route: 047
     Dates: start: 20190313, end: 20190416
  2. TOBRADEX [Suspect]
     Active Substance: DEXAMETHASONE\TOBRAMYCIN
     Dosage: 1 DRP, QD
     Route: 047
     Dates: start: 20190502, end: 2019
  3. TOBREX [Suspect]
     Active Substance: TOBRAMYCIN
     Indication: Product used for unknown indication
     Dosage: UNK
     Route: 065
     Dates: start: 20190421, end: 20190502
  4. TROPICAMIDE [Suspect]
     Active Substance: TROPICAMIDE
     Indication: Postoperative care
     Dosage: 1 DRP, QD (PRESCRIBED FOR 8 DAYS; 1 DROP 2 TIMES PER DAY)
     Route: 047
     Dates: start: 20190313, end: 20190416
  5. SYSTANE BALANCE [Suspect]
     Active Substance: PROPYLENE GLYCOL
     Indication: Product used for unknown indication
     Dosage: 2 DRP, QD (1 DROP IN BOTH EYES)
     Route: 065
     Dates: start: 20190516
  6. CARBOMER [Suspect]
     Active Substance: CARBOMER
     Indication: Product used for unknown indication
     Dosage: UNK (ONCE AT BEDTIME)
     Route: 065
     Dates: start: 20190516, end: 2019
  7. VITABACT [Suspect]
     Active Substance: PICLOXYDINE DIHYDROCHLORIDE
     Indication: Preoperative care
     Dosage: UNK, QD
     Route: 047
     Dates: start: 20190310, end: 20190312
  8. REFRESH CELLUVISC [Suspect]
     Active Substance: CARBOXYMETHYLCELLULOSE SODIUM
     Indication: Postoperative care
     Dosage: UNK (IN THE EVENING, RESTARTED)
     Route: 047
     Dates: start: 20190413, end: 20190416
  9. REFRESH CELLUVISC [Suspect]
     Active Substance: CARBOXYMETHYLCELLULOSE SODIUM
     Dosage: UNK (IN THE EVENING, RESTARTED)
     Route: 047
     Dates: start: 2019
  10. HYALURONATE SODIUM [Suspect]
     Active Substance: HYALURONATE SODIUM
     Indication: Eye inflammation
     Dosage: UNK, QD (STERILE SOLUTION FOR TOPICAL OPHTHALMIC USE; FOR 5 DAYS)
     Route: 047
     Dates: start: 2019, end: 20190416
  11. HYALURONATE SODIUM [Suspect]
     Active Substance: HYALURONATE SODIUM
     Indication: Ocular hypertension
  12. HYALURONATE SODIUM [Suspect]
     Active Substance: HYALURONATE SODIUM
     Indication: Eye pain
  13. VITAMIN B12 [Suspect]
     Active Substance: CYANOCOBALAMIN
     Indication: Postoperative care
     Dosage: UNK, QD (IN SINGLE DOSE UNITS)
     Route: 047
     Dates: start: 20190413, end: 20190416
  14. BORIC ACID\SODIUM BORATE [Suspect]
     Active Substance: BORIC ACID\SODIUM BORATE
     Indication: Postoperative care
     Dosage: UNK
     Route: 047
     Dates: start: 20190313
  15. HYALURONATE SODIUM\SODIUM CHLORIDE [Suspect]
     Active Substance: HYALURONATE SODIUM\SODIUM CHLORIDE
     Indication: Eye oedema
     Dosage: UNK (USE IN LEFT EYE)
     Route: 047
     Dates: start: 20190410, end: 20190416
  16. RETINOL [Suspect]
     Active Substance: RETINOL
     Indication: Product used for unknown indication
     Dosage: UNK (DULCIS)
     Route: 065
     Dates: start: 201904, end: 20190502
  17. RETINOL [Suspect]
     Active Substance: RETINOL
     Indication: Product used for unknown indication
     Dosage: 2 DRP, QD (DAILY DOSE OF 4 DROPS IN BOTH EYES)
     Route: 047
     Dates: start: 20190502
  18. INDOMETHACIN [Suspect]
     Active Substance: INDOMETHACIN
     Indication: Preoperative care
     Dosage: 1 DRP, QD (1 GTT, QD)
     Route: 047
     Dates: start: 20190310, end: 20190413
  19. INDOMETHACIN [Suspect]
     Active Substance: INDOMETHACIN
     Dosage: 1 DRP, QD (1 GTT, QD)
     Route: 047
     Dates: start: 201904, end: 201904
  20. INSULIN NOS [Concomitant]
     Active Substance: INSULIN NOS
     Indication: Product used for unknown indication
     Dosage: UNK, BID (MORNING AND EVENING)
     Route: 065

REACTIONS (10)
  - Eye inflammation [Unknown]
  - Eye oedema [Unknown]
  - Ocular hypertension [Unknown]
  - Eye pain [Not Recovered/Not Resolved]
  - Keratitis [Recovered/Resolved]
  - Sinusitis [Unknown]
  - Foreign body sensation in eyes [Unknown]
  - Photophobia [Not Recovered/Not Resolved]
  - Eye irritation [Not Recovered/Not Resolved]
  - Off label use [Unknown]

NARRATIVE: CASE EVENT DATE: 20190101
